FAERS Safety Report 20410814 (Version 2)
Quarter: 2022Q1

REPORT INFORMATION
  Report Type: Spontaneous
  Country: US (occurrence: None)
  Receive Date: 20220201
  Receipt Date: 20220209
  Transmission Date: 20220423
  Serious: Yes (Death)
  Sender: FDA-Public Use
  Company Number: US-ROCHE-3013868

PATIENT
  Age: 73 Year
  Sex: Male
  Weight: 99.880 kg

DRUGS (1)
  1. AVASTIN [Suspect]
     Active Substance: BEVACIZUMAB
     Indication: Glioblastoma
     Dosage: NO
     Route: 042
     Dates: start: 2019

REACTIONS (3)
  - Renal disorder [Fatal]
  - Glioblastoma [Fatal]
  - Wound secretion [Unknown]

NARRATIVE: CASE EVENT DATE: 20210629
